FAERS Safety Report 7867111-X (Version None)
Quarter: 2011Q4

REPORT INFORMATION
  Report Type: 
  Country: None (occurrence: None)
  Receive Date: 20111028
  Receipt Date: 20111018
  Transmission Date: 20120403
  Serious: Yes (Hospitalization)
  Sender: FDA-Public Use
  Company Number: JP-BRISTOL-MYERS SQUIBB COMPANY-16107914

PATIENT
  Age: 78 Year
  Sex: Female

DRUGS (10)
  1. MAGMITT [Concomitant]
     Route: 048
  2. FUROSEMIDE [Concomitant]
     Route: 048
  3. ZOPICOOL [Concomitant]
     Route: 048
  4. MUCOSTA [Concomitant]
     Route: 048
  5. LIVACT [Concomitant]
     Route: 048
     Dates: start: 20110824, end: 20110929
  6. MITOMYCIN [Suspect]
     Indication: HEPATIC NEOPLASM MALIGNANT
     Dosage: INJ
     Route: 013
     Dates: start: 20110824, end: 20110824
  7. EPIRUBICIN HYDROCHLORIDE [Suspect]
     Indication: HEPATIC NEOPLASM MALIGNANT
     Dosage: 12JUL11-22AUG11
     Route: 013
     Dates: start: 20110814, end: 20110824
  8. FAMOTIDINE [Concomitant]
     Route: 048
  9. LOXOPROFEN [Concomitant]
     Dosage: TABS
     Route: 048
     Dates: start: 20110626
  10. URSO 250 [Concomitant]
     Route: 048

REACTIONS (6)
  - PLATELET COUNT DECREASED [None]
  - BLOOD SODIUM DECREASED [None]
  - BILOMA [None]
  - BLOOD CHLORIDE DECREASED [None]
  - WHITE BLOOD CELL COUNT DECREASED [None]
  - BILIARY TRACT DISORDER [None]
